FAERS Safety Report 24194868 (Version 1)
Quarter: 2024Q3

REPORT INFORMATION
  Report Type: Spontaneous
  Country: US (occurrence: None)
  Receive Date: 20240809
  Receipt Date: 20240809
  Transmission Date: 20241017
  Serious: Yes (Hospitalization, Disabling, Other)
  Sender: Public
  Company Number: None

PATIENT
  Age: 54 Year
  Sex: Female
  Weight: 67.5 kg

DRUGS (5)
  1. MONTELUKAST [Suspect]
     Active Substance: MONTELUKAST SODIUM
     Indication: Asthma
  2. ALBUTEROL [Concomitant]
     Active Substance: ALBUTEROL
  3. SYMBICOURT [Concomitant]
  4. HERBALS\TURMERIC [Concomitant]
     Active Substance: HERBALS\TURMERIC
  5. IBUPROFEN [Concomitant]
     Active Substance: IBUPROFEN

REACTIONS (17)
  - Palpitations [None]
  - Anxiety [None]
  - Depression [None]
  - Hallucination, auditory [None]
  - Hallucination, olfactory [None]
  - Infection [None]
  - Sepsis [None]
  - Fatigue [None]
  - Intrusive thoughts [None]
  - Tic [None]
  - Tachycardia [None]
  - Respiratory failure [None]
  - Amnesia [None]
  - Confusional state [None]
  - Brain fog [None]
  - Anger [None]
  - Oxygen saturation decreased [None]
